FAERS Safety Report 14802647 (Version 2)
Quarter: 2018Q2

REPORT INFORMATION
  Report Type: Spontaneous
  Country: US (occurrence: US)
  Receive Date: 20180424
  Receipt Date: 20180508
  Transmission Date: 20180711
  Serious: Yes (Other)
  Sender: FDA-Public Use
  Company Number: US-INDIVIOR LIMITED-INDV-110431-2018

PATIENT
  Sex: Male

DRUGS (1)
  1. SUBOXONE [Suspect]
     Active Substance: BUPRENORPHINE HYDROCHLORIDE\NALOXONE HYDROCHLORIDE
     Indication: DRUG DEPENDENCE
     Dosage: 8 MG, TWICE DAILY ONE IN MORNING AND ONE IN AFTERNOON
     Route: 060

REACTIONS (7)
  - Nausea [Unknown]
  - Malaise [Unknown]
  - Hallucination [Recovered/Resolved]
  - Product use issue [Not Recovered/Not Resolved]
  - Dizziness [Unknown]
  - Drug withdrawal syndrome [Recovered/Resolved]
  - Drug dose omission [Recovered/Resolved]
